FAERS Safety Report 11417012 (Version 4)
Quarter: 2016Q1

REPORT INFORMATION
  Report Type: Spontaneous
  Country: IT (occurrence: IT)
  Receive Date: 20150825
  Receipt Date: 20160211
  Transmission Date: 20160525
  Serious: Yes (Death, Hospitalization)
  Sender: FDA-Public Use
  Company Number: IT-CELGENE-ITA-2015084077

PATIENT
  Age: 56 Year
  Sex: Male

DRUGS (1)
  1. IMNOVID [Suspect]
     Active Substance: POMALIDOMIDE
     Indication: PLASMA CELL MYELOMA
     Route: 048
     Dates: start: 20150805, end: 20150809

REACTIONS (4)
  - Multiple organ dysfunction syndrome [Fatal]
  - Plasma cell myeloma [Fatal]
  - Hypotension [Fatal]
  - Diarrhoea [Fatal]

NARRATIVE: CASE EVENT DATE: 20150812
